FAERS Safety Report 11072054 (Version 2)
Quarter: 2015Q2

REPORT INFORMATION
  Report Type: Report from Study
  Country: MX (occurrence: MX)
  Receive Date: 20150428
  Receipt Date: 20150526
  Transmission Date: 20150821
  Serious: No
  Sender: FDA-Public Use
  Company Number: PHHY2015MX045438

PATIENT
  Sex: Male

DRUGS (3)
  1. FRISIUM [Concomitant]
     Active Substance: CLOBAZAM
     Indication: PRODUCT USED FOR UNKNOWN INDICATION
     Dosage: HALF TABLET IN THE MORNING AND HALF AT NIGHT
     Route: 065
  2. TEGRETOL [Suspect]
     Active Substance: CARBAMAZEPINE
     Indication: SLEEP DISORDER
     Dosage: 3 ML (2G/1000 ML), QHS
     Route: 048
  3. EPIVAL [Concomitant]
     Active Substance: DIVALPROEX SODIUM
     Indication: PRODUCT USED FOR UNKNOWN INDICATION
     Dosage: 2 DF, BID (2 CAPSULES IN THE MORNING AND 2 CAPSULES AT NIGHT)
     Route: 065

REACTIONS (1)
  - Product use issue [Not Recovered/Not Resolved]
